FAERS Safety Report 8511363 (Version 4)
Quarter: 2013Q2

REPORT INFORMATION
  Report Type: Spontaneous
  Country: US (occurrence: US)
  Receive Date: 20120413
  Receipt Date: 20130619
  Transmission Date: 20140414
  Serious: Yes (Hospitalization)
  Sender: FDA-Public Use
  Company Number: US-ASTRAZENECA-2011SE52564

PATIENT
  Age: 91 Year
  Sex: Female
  Weight: 86.2 kg

DRUGS (10)
  1. NEXIUM [Suspect]
     Indication: GASTRIC ULCER
     Route: 048
  2. OMEPRAZOLE [Suspect]
     Route: 048
  3. MIRALAX [Suspect]
     Route: 065
  4. ACTONEL [Concomitant]
  5. CELEBREX [Concomitant]
     Dosage: DAILY
     Route: 048
  6. LIPITOR [Concomitant]
     Indication: BLOOD CHOLESTEROL INCREASED
     Route: 048
  7. LISINOPRIL/HCTZ [Concomitant]
     Indication: HYPERTENSION
     Route: 048
  8. SYNTHROID [Concomitant]
     Indication: HYPOTHYROIDISM
     Dosage: DAILY
     Route: 048
  9. STOOL SOFTENER [Concomitant]
     Indication: CONSTIPATION
  10. PHILLIPS MILK OF MAG [Concomitant]
     Indication: CONSTIPATION

REACTIONS (12)
  - Abdominal pain upper [Unknown]
  - Weight decreased [Unknown]
  - Thyroid disorder [Unknown]
  - Gastric disorder [Not Recovered/Not Resolved]
  - Diverticulitis [Not Recovered/Not Resolved]
  - Abdominal distension [Not Recovered/Not Resolved]
  - Condition aggravated [Unknown]
  - Malaise [Unknown]
  - Abdominal pain [Not Recovered/Not Resolved]
  - Constipation [Not Recovered/Not Resolved]
  - Drug dose omission [Unknown]
  - Drug ineffective [Unknown]
